FAERS Safety Report 6210326-7 (Version None)
Quarter: 2009Q2

REPORT INFORMATION
  Report Type: 
  Country: None (occurrence: None)
  Receive Date: 20090529
  Receipt Date: 20090529
  Transmission Date: 20091009
  Serious: No
  Sender: FDA-Public Use
  Company Number: None

PATIENT
  Weight: 111.1313 kg

DRUGS (1)
  1. ZOLOFT [Suspect]
     Indication: BIPOLAR II DISORDER
     Dosage: 1 PO Q AM PO
     Route: 048
     Dates: start: 20090514, end: 20090528

REACTIONS (2)
  - CONDITION AGGRAVATED [None]
  - SUICIDAL IDEATION [None]
